FAERS Safety Report 9386213 (Version 3)
Quarter: 2013Q4

REPORT INFORMATION
  Report Type: Spontaneous
  Country: US (occurrence: US)
  Receive Date: 20130708
  Receipt Date: 20131011
  Transmission Date: 20140711
  Serious: Yes (Death, Other)
  Sender: FDA-Public Use
  Company Number: US-AMGEN-USASP2013046888

PATIENT
  Age: 94 Year
  Sex: Female

DRUGS (2)
  1. PROLIA [Suspect]
     Indication: OSTEOPOROSIS
     Dosage: UNK
     Route: 065
     Dates: start: 20120116
  2. PROLIA [Suspect]
     Dosage: UNK
     Route: 065
     Dates: start: 20120717

REACTIONS (10)
  - Death [Fatal]
  - Lumbar spinal stenosis [Unknown]
  - Hip arthroplasty [Unknown]
  - Spinal fracture [Unknown]
  - Pain [Unknown]
  - Drug intolerance [Unknown]
  - Insomnia [Unknown]
  - Gastrooesophageal reflux disease [Unknown]
  - Constipation [Unknown]
  - Urinary incontinence [Unknown]
